FAERS Safety Report 25872374 (Version 2)
Quarter: 2025Q4

REPORT INFORMATION
  Report Type: Report from Study
  Country: US (occurrence: US)
  Receive Date: 20251002
  Receipt Date: 20251013
  Transmission Date: 20260118
  Serious: Yes (Other)
  Sender: ABBVIE
  Company Number: US-ABBVIE-6482217

PATIENT
  Age: 44 Year
  Sex: Female
  Weight: 83 kg

DRUGS (3)
  1. SKYRIZI [Suspect]
     Active Substance: RISANKIZUMAB-RZAA
     Indication: Colitis ulcerative
     Dosage: 1 DOSE
     Route: 058
     Dates: start: 20250327, end: 20250327
  2. SKYRIZI [Suspect]
     Active Substance: RISANKIZUMAB-RZAA
     Dosage: 2 DOSE
     Route: 058
     Dates: start: 20250929
  3. SKYRIZI [Suspect]
     Active Substance: RISANKIZUMAB-RZAA
     Indication: Colitis ulcerative
     Route: 042
     Dates: start: 2025, end: 2025

REACTIONS (9)
  - Precancerous condition [Recovered/Resolved]
  - Injection site swelling [Recovered/Resolved]
  - Injection site pain [Recovered/Resolved]
  - Colon operation [Recovering/Resolving]
  - Device issue [Not Recovered/Not Resolved]
  - Injection site swelling [Recovered/Resolved]
  - Injection site bruising [Recovered/Resolved]
  - Injection site swelling [Not Recovered/Not Resolved]
  - Injection site discharge [Unknown]

NARRATIVE: CASE EVENT DATE: 20250101
